FAERS Safety Report 8436212-X (Version None)
Quarter: 2012Q2

REPORT INFORMATION
  Report Type: 
  Country: None (occurrence: None)
  Receive Date: 20120607
  Receipt Date: 20120607
  Transmission Date: 20120825
  Serious: No
  Sender: FDA-Public Use
  Company Number: None

PATIENT

DRUGS (1)
  1. ACETAMINOPHEN [Suspect]

REACTIONS (3)
  - OVERDOSE [None]
  - INCORRECT DRUG ADMINISTRATION RATE [None]
  - INTERCEPTED DRUG ADMINISTRATION ERROR [None]
